FAERS Safety Report 4386304-X (Version None)
Quarter: 2004Q2

REPORT INFORMATION
  Report Type: 
  Country: None (occurrence: None)
  Receive Date: 20040625
  Receipt Date: 20040625
  Transmission Date: 20050107
  Serious: No
  Sender: FDA-Public Use
  Company Number: None

PATIENT
  Age: 70 Year
  Sex: Male

DRUGS (1)
  1. LIDOCAINE HCL VISCOUS [Suspect]

REACTIONS (2)
  - CARDIAC ARREST [None]
  - DRUG HYPERSENSITIVITY [None]
